FAERS Safety Report 5872453-3 (Version None)
Quarter: 2008Q3

REPORT INFORMATION
  Report Type: 
  Country: None (occurrence: None)
  Receive Date: 20080905
  Receipt Date: 20080829
  Transmission Date: 20090109
  Serious: Yes (Other)
  Sender: FDA-Public Use
  Company Number: PHHY2008FR19844

PATIENT

DRUGS (1)
  1. RITALIN-SR [Suspect]
     Route: 042

REACTIONS (4)
  - INTENTIONAL DRUG MISUSE [None]
  - SOCIAL AVOIDANT BEHAVIOUR [None]
  - TOOTH LOSS [None]
  - WEIGHT DECREASED [None]
